FAERS Safety Report 5426474-5 (Version None)
Quarter: 2007Q3

REPORT INFORMATION
  Report Type: 
  Country: None (occurrence: None)
  Receive Date: 20070827
  Receipt Date: 20070816
  Transmission Date: 20080115
  Serious: Yes (Other)
  Sender: FDA-Public Use
  Company Number: BR-PFIZER INC-2007040797

PATIENT
  Sex: Female
  Weight: 70 kg

DRUGS (8)
  1. XALATAN [Suspect]
     Indication: GLAUCOMA
     Route: 047
  2. VALSARTAN [Concomitant]
     Dosage: DAILY DOSE:160MG
     Route: 048
  3. SIMVASTATIN [Concomitant]
     Dosage: DAILY DOSE:20MG
     Route: 048
  4. NIFEDIPINE [Concomitant]
     Dosage: DAILY DOSE:20MG
     Route: 048
  5. INDAPAMIDE [Concomitant]
     Indication: HYPERTENSION
     Dosage: DAILY DOSE:2.5MG
  6. INSULIN [Concomitant]
     Indication: DIABETES MELLITUS
     Dosage: TEXT:20 UNITS IN AM AND 10 UNITS IN PM
  7. AZOPT [Concomitant]
  8. GLUCOBAY [Concomitant]
     Route: 048

REACTIONS (11)
  - DEPRESSION [None]
  - DIABETES MELLITUS [None]
  - DRY MOUTH [None]
  - DYSPHAGIA [None]
  - EATING DISORDER [None]
  - HYPERSENSITIVITY [None]
  - MOUTH HAEMORRHAGE [None]
  - ORAL PAIN [None]
  - STOMATITIS [None]
  - THROAT IRRITATION [None]
  - TONGUE DISORDER [None]
